FAERS Safety Report 5414844-0 (Version None)
Quarter: 2007Q3

REPORT INFORMATION
  Report Type: 
  Country: None (occurrence: None)
  Receive Date: 20070815
  Receipt Date: 20070807
  Transmission Date: 20080115
  Serious: Yes (Other)
  Sender: FDA-Public Use
  Company Number: PHEH2007US10908

PATIENT
  Age: 63 Year
  Sex: Female

DRUGS (2)
  1. LOTREL [Suspect]
     Dosage: 10/20 MG
     Route: 048
     Dates: start: 20050101, end: 20070701
  2. FLONASE [Concomitant]

REACTIONS (2)
  - DYSPHAGIA [None]
  - SENSATION OF FOREIGN BODY [None]
